FAERS Safety Report 4451414-5 (Version None)
Quarter: 2004Q3

REPORT INFORMATION
  Report Type: 
  Country: None (occurrence: None)
  Receive Date: 20040916
  Receipt Date: 20040903
  Transmission Date: 20050211
  Serious: Yes (Death)
  Sender: FDA-Public Use
  Company Number: JP-JNJFOC-20040901484

PATIENT
  Sex: Female

DRUGS (9)
  1. FENTANYL [Suspect]
     Indication: CANCER PAIN
     Route: 062
  2. BETAMETHASONE [Concomitant]
     Route: 049
  3. MIXED AMINO ACID + CARBOHYDRATE + ELECTROLYTE [Concomitant]
     Dosage: 2-3 TIMES DAILY
     Route: 051
  4. FUROSEMIDE [Concomitant]
     Route: 042
  5. FLURBIPROFEN AXETIL [Concomitant]
     Indication: CANCER PAIN
     Route: 042
  6. MAGNESIUM OXIDE [Concomitant]
     Indication: CONSTIPATION
     Route: 049
  7. SODIUM PICOSULFATE [Concomitant]
     Indication: CONSTIPATION
     Dosage: 2.5-5 MG DAILY
     Route: 049
  8. ISOTONIC SODIUM CHLORIDE SOLUTION [Concomitant]
     Route: 051
  9. MORPHINE HYDROCHLORIDE [Concomitant]
     Indication: CANCER PAIN
     Route: 049

REACTIONS (5)
  - DEPRESSED LEVEL OF CONSCIOUSNESS [None]
  - MALIGNANT NEOPLASM PROGRESSION [None]
  - PUPILLARY REFLEX IMPAIRED [None]
  - PUPILS UNEQUAL [None]
  - UNRESPONSIVE TO PAIN STIMULI [None]
